FAERS Safety Report 7417253-8 (Version None)
Quarter: 2011Q2

REPORT INFORMATION
  Report Type: 
  Country: None (occurrence: None)
  Receive Date: 20110415
  Receipt Date: 20110324
  Transmission Date: 20111010
  Serious: Yes (Hospitalization)
  Sender: FDA-Public Use
  Company Number: US-BAYER-201038290NA

PATIENT
  Age: 28 Year
  Sex: Female
  Weight: 58.957 kg

DRUGS (14)
  1. TAGAMET [Concomitant]
  2. ZANAFLEX [Concomitant]
  3. ROBAXIN [Concomitant]
  4. ASCORBIC ACID [Concomitant]
  5. YAZ [Suspect]
     Indication: PREMENSTRUAL SYNDROME
     Dosage: UNK
     Route: 048
  6. TRAZODONE [Concomitant]
  7. FOLIC ACID [Concomitant]
  8. NSAID'S [Concomitant]
  9. YASMIN [Suspect]
     Indication: PRODUCT USED FOR UNKNOWN INDICATION
  10. CELEXA [Concomitant]
  11. INDERAL [Concomitant]
  12. KLONOPIN [Concomitant]
  13. YAZ [Suspect]
  14. PRILOSEC [Concomitant]

REACTIONS (4)
  - POST-TRAUMATIC STRESS DISORDER [None]
  - DEEP VEIN THROMBOSIS [None]
  - ANXIETY [None]
  - DEPRESSION [None]
